FAERS Safety Report 8589912-5 (Version None)
Quarter: 2012Q3

REPORT INFORMATION
  Report Type: 
  Country: None (occurrence: None)
  Receive Date: 20120813
  Receipt Date: 20120807
  Transmission Date: 20120928
  Serious: Yes (Other)
  Sender: FDA-Public Use
  Company Number: JP-VERTEX PHARMACEUTICALS INC.-AE-2012-011912

PATIENT
  Age: 52 Year
  Sex: Male

DRUGS (7)
  1. RIBAVIRIN [Concomitant]
     Indication: HEPATITIS C
     Route: 048
     Dates: start: 20120615
  2. RIBAVIRIN [Concomitant]
     Route: 048
     Dates: start: 20120706, end: 20120713
  3. DIFLUNISAL [Concomitant]
     Route: 048
  4. TELAVIC (TELAPREVIR) [Suspect]
     Indication: HEPATITIS C
     Route: 048
     Dates: start: 20120615
  5. PEGINTERFERON ALFA-2B [Concomitant]
     Indication: HEPATITIS C
     Dates: start: 20120615, end: 20120713
  6. JANUVIA [Concomitant]
     Route: 048
  7. BASEN [Concomitant]
     Route: 048

REACTIONS (1)
  - MALAISE [None]
